FAERS Safety Report 7812909-7 (Version None)
Quarter: 2011Q4

REPORT INFORMATION
  Report Type: 
  Country: None (occurrence: None)
  Receive Date: 20111013
  Receipt Date: 20111004
  Transmission Date: 20120403
  Serious: Yes (Hospitalization)
  Sender: FDA-Public Use
  Company Number: NL-ASTRAZENECA-2011SE59639

PATIENT
  Age: 29252 Day
  Sex: Female
  Weight: 100 kg

DRUGS (19)
  1. DIAZEPAM [Concomitant]
     Route: 048
  2. FLUTICASONE PROPIONATE/SALMETEROL [Concomitant]
     Dosage: 25/125UG TWO TIMES A DAY
     Route: 055
  3. SPIRIVA RESPIMAT [Concomitant]
     Route: 055
  4. FUROSEMIDE [Suspect]
     Route: 048
     Dates: end: 20110920
  5. OXAZEPAM [Concomitant]
     Route: 048
  6. SLOW-K [Concomitant]
     Route: 048
     Dates: start: 20090101
  7. ACETAMINOPHEN [Concomitant]
     Route: 048
  8. ARCOXIA [Concomitant]
     Route: 048
  9. FUROSEMIDE [Suspect]
     Indication: OEDEMA
     Route: 048
     Dates: start: 19960101
  10. LEVOTHYROXINE SODIUM [Concomitant]
     Route: 048
  11. OMEPRAZOLE [Suspect]
     Indication: HAEMATEMESIS
     Route: 048
     Dates: start: 20000101, end: 20110921
  12. METOPROLOL TARTRATE [Concomitant]
     Route: 048
     Dates: start: 20020101
  13. SIMVASTATIN [Concomitant]
     Route: 048
     Dates: start: 19980101
  14. MARCUMAR [Concomitant]
     Route: 048
     Dates: start: 20010101
  15. DEPAKOTE [Concomitant]
  16. ENALAPRIL MALEATE [Concomitant]
     Dates: start: 20090101
  17. KEPPRA [Concomitant]
     Indication: ALOPECIA
     Route: 048
     Dates: start: 20090301
  18. NIFEDIPINE [Concomitant]
     Route: 048
  19. LOPERAMIDE HCL [Concomitant]
     Dosage: 1-2 MG/DAY
     Route: 048

REACTIONS (4)
  - HYPOCALCAEMIA [None]
  - HYPOKALAEMIA [None]
  - CONVULSION [None]
  - HYPOMAGNESAEMIA [None]
